FAERS Safety Report 6817869-3 (Version None)
Quarter: 2010Q3

REPORT INFORMATION
  Report Type: 
  Country: None (occurrence: None)
  Receive Date: 20100706
  Receipt Date: 20100629
  Transmission Date: 20110219
  Serious: Yes (Other)
  Sender: FDA-Public Use
  Company Number: DE-SANOFI-AVENTIS-2010SA035147

PATIENT
  Age: 15 Year
  Sex: Female
  Weight: 62 kg

DRUGS (2)
  1. TELFAST [Suspect]
     Route: 048
     Dates: start: 20100617, end: 20100617
  2. VIANI [Concomitant]
     Dosage: 2 X 1 PUFF
     Route: 048

REACTIONS (2)
  - TETANY [None]
  - TREMOR [None]
